FAERS Safety Report 18038079 (Version 5)
Quarter: 2021Q4

REPORT INFORMATION
  Report Type: Spontaneous
  Country: SK (occurrence: SK)
  Receive Date: 20200717
  Receipt Date: 20211209
  Transmission Date: 20220303
  Serious: Yes (Death, Life-Threatening, Hospitalization, Other)
  Sender: FDA-Public Use
  Company Number: SK-ACTELION-A-CH2020-206614

PATIENT
  Age: 36 Year
  Sex: Female

DRUGS (7)
  1. BOSENTAN [Suspect]
     Active Substance: BOSENTAN
     Indication: Pulmonary arterial hypertension
     Dosage: UNK
     Route: 048
     Dates: start: 2013
  2. SILDENAFIL [Suspect]
     Active Substance: SILDENAFIL
     Indication: Pulmonary arterial hypertension
     Dosage: UNK
     Route: 065
     Dates: start: 2007
  3. SILDENAFIL [Suspect]
     Active Substance: SILDENAFIL
     Indication: Pulmonary hypertension
     Dosage: UNK
     Route: 065
     Dates: start: 2013
  4. SILDENAFIL [Suspect]
     Active Substance: SILDENAFIL
     Dosage: UNK
     Route: 065
  5. REMODULIN [Suspect]
     Active Substance: TREPROSTINIL
     Indication: Pulmonary arterial hypertension
     Dosage: UNK
     Route: 058
     Dates: start: 2012
  6. TREPROSTINIL [Suspect]
     Active Substance: TREPROSTINIL
     Indication: Pulmonary arterial hypertension
     Dosage: UNK
     Route: 058
     Dates: start: 2012
  7. WARFARIN [Concomitant]
     Active Substance: WARFARIN
     Dosage: UNK

REACTIONS (15)
  - Cardiac failure [Fatal]
  - Tachyarrhythmia [Unknown]
  - Tachycardia [Recovered/Resolved]
  - Atrial tachycardia [Not Recovered/Not Resolved]
  - Dyspnoea at rest [Not Recovered/Not Resolved]
  - Dyspnoea [Recovered/Resolved]
  - General physical health deterioration [Not Recovered/Not Resolved]
  - Supraventricular tachycardia [Not Recovered/Not Resolved]
  - Right ventricular failure [Not Recovered/Not Resolved]
  - Hypotension [Recovered/Resolved]
  - Hypokalaemia [Unknown]
  - Intra-abdominal haemorrhage [Unknown]
  - Anaemia [Unknown]
  - Nausea [Unknown]
  - Vomiting [Unknown]

NARRATIVE: CASE EVENT DATE: 20140101
